FAERS Safety Report 19449646 (Version 1)
Quarter: 2021Q2

REPORT INFORMATION
  Report Type: Spontaneous
  Country: US (occurrence: US)
  Receive Date: 20210622
  Receipt Date: 20210622
  Transmission Date: 20210717
  Serious: No
  Sender: FDA-Public Use
  Company Number: US-SA-2021SA198529

PATIENT
  Age: 69 Year
  Sex: Male

DRUGS (3)
  1. ACETYLSALICYLIC ACID [Suspect]
     Active Substance: ASPIRIN
     Dosage: UNK
     Dates: start: 202102
  2. PLAVIX [Suspect]
     Active Substance: CLOPIDOGREL BISULFATE
     Indication: ACUTE MYOCARDIAL INFARCTION
     Dosage: 75 MG
     Route: 048
     Dates: start: 20210209
  3. ELIQUIS [Suspect]
     Active Substance: APIXABAN
     Dosage: 5 MG, BID
     Route: 048
     Dates: start: 202102

REACTIONS (6)
  - COVID-19 [Recovered/Resolved]
  - Wound haemorrhage [Unknown]
  - Limb injury [Unknown]
  - Weight decreased [Unknown]
  - Taste disorder [Unknown]
  - Skin laceration [Unknown]

NARRATIVE: CASE EVENT DATE: 20210320
